FAERS Safety Report 6551454-6 (Version None)
Quarter: 2010Q1

REPORT INFORMATION
  Report Type: 
  Country: None (occurrence: None)
  Receive Date: 20100126
  Receipt Date: 20100121
  Transmission Date: 20100710
  Serious: Yes (Hospitalization)
  Sender: FDA-Public Use
  Company Number: US-BRISTOL-MYERS SQUIBB COMPANY-14943922

PATIENT
  Age: 55 Year
  Sex: Female
  Weight: 80 kg

DRUGS (2)
  1. ATAZANAVIR [Suspect]
     Indication: HIV INFECTION
     Route: 048
     Dates: start: 20090925, end: 20100114
  2. PRILOSEC [Concomitant]
     Indication: ABDOMINAL PAIN UPPER
     Dates: start: 20091120

REACTIONS (1)
  - EROSIVE OESOPHAGITIS [None]
